FAERS Safety Report 7999860-7 (Version None)
Quarter: 2011Q4

REPORT INFORMATION
  Report Type: 
  Country: None (occurrence: None)
  Receive Date: 20111222
  Receipt Date: 20111214
  Transmission Date: 20120403
  Serious: No
  Sender: FDA-Public Use
  Company Number: US-BIOGENIDEC-2011BI041321

PATIENT
  Age: 25 Year
  Sex: Female

DRUGS (6)
  1. DILANTIN [Concomitant]
     Indication: CONVULSION
     Dates: start: 20060101
  2. AVONEX [Concomitant]
     Indication: MULTIPLE SCLEROSIS
     Route: 030
     Dates: start: 20051015
  3. TYSABRI [Suspect]
     Indication: MULTIPLE SCLEROSIS
     Route: 042
     Dates: start: 20070919
  4. TYSABRI [Suspect]
     Route: 042
     Dates: start: 20060801, end: 20070817
  5. COPAXONE [Concomitant]
  6. LAMICTAL [Concomitant]
     Indication: CONVULSION
     Dates: start: 20111101

REACTIONS (1)
  - MULTIPLE SCLEROSIS RELAPSE [None]
